FAERS Safety Report 4382629-2 (Version None)
Quarter: 2004Q2

REPORT INFORMATION
  Report Type: 
  Country: None (occurrence: None)
  Receive Date: 20040622
  Receipt Date: 20040524
  Transmission Date: 20050107
  Serious: Yes (Death)
  Sender: FDA-Public Use
  Company Number: US-GLAXOSMITHKLINE-A0512342A

PATIENT
  Age: 53 Year
  Sex: Female

DRUGS (4)
  1. IMITREX [Suspect]
     Indication: DRUG USE FOR UNKNOWN INDICATION
     Route: 065
     Dates: start: 19960101
  2. NAPROSYN [Concomitant]
     Indication: DRUG USE FOR UNKNOWN INDICATION
  3. ZITHROMAX [Concomitant]
  4. FOSAMAX [Concomitant]

REACTIONS (5)
  - AORTIC DISORDER [None]
  - CARDIO-RESPIRATORY ARREST [None]
  - DEPRESSED LEVEL OF CONSCIOUSNESS [None]
  - LIVEDO RETICULARIS [None]
  - PALLOR [None]
